FAERS Safety Report 15352599 (Version 2)
Quarter: 2018Q3

REPORT INFORMATION
  Report Type: Report from Study
  Country: US (occurrence: US)
  Receive Date: 20180905
  Receipt Date: 20180924
  Transmission Date: 20181010
  Serious: Yes (Death)
  Sender: FDA-Public Use
  Company Number: PHEH2018US036210

PATIENT
  Sex: Female
  Weight: 120 kg

DRUGS (1)
  1. ENTRESTO [Suspect]
     Active Substance: SACUBITRIL\VALSARTAN
     Indication: PRODUCT USED FOR UNKNOWN INDICATION
     Dosage: 1 MG, (24MG SACUBITRIL, 26MG VALSARTAN), UNK
     Route: 048
     Dates: start: 20160909, end: 20171224

REACTIONS (2)
  - Death [Fatal]
  - Pruritus [Unknown]
